FAERS Safety Report 19631904 (Version 1)
Quarter: 2021Q3

REPORT INFORMATION
  Report Type: Spontaneous
  Country: BR (occurrence: BR)
  Receive Date: 20210729
  Receipt Date: 20210729
  Transmission Date: 20211014
  Serious: Yes (Other)
  Sender: FDA-Public Use
  Company Number: BR-TAKEDA-2021TUS045444

PATIENT
  Age: 10 Year
  Sex: Male

DRUGS (1)
  1. KIOVIG [Suspect]
     Active Substance: HUMAN IMMUNOGLOBULIN G
     Indication: STATUS EPILEPTICUS
     Dosage: 10 GRAM
     Route: 050

REACTIONS (4)
  - Off label use [Unknown]
  - Incorrect drug administration rate [Unknown]
  - Syncope [Unknown]
  - Blood pressure decreased [Unknown]
